FAERS Safety Report 7908323-6 (Version None)
Quarter: 2011Q4

REPORT INFORMATION
  Report Type: 
  Country: None (occurrence: None)
  Receive Date: 20111111
  Receipt Date: 20111104
  Transmission Date: 20120403
  Serious: No
  Sender: FDA-Public Use
  Company Number: US-BIOGENIDEC-2011BI042280

PATIENT
  Age: 15 Year
  Sex: Female

DRUGS (3)
  1. AVONEX [Suspect]
     Route: 030
     Dates: start: 20051019
  2. AVONEX [Suspect]
     Route: 030
     Dates: start: 20000406
  3. AVONEX [Suspect]
     Indication: MULTIPLE SCLEROSIS
     Route: 030
     Dates: start: 20111013

REACTIONS (4)
  - MUSCULOSKELETAL STIFFNESS [None]
  - ANXIETY [None]
  - INJECTION SITE PAIN [None]
  - BONE PAIN [None]
